FAERS Safety Report 4199256 (Version 3)
Quarter: 2012Q4

REPORT INFORMATION
  Report Type: 
  Country: PE (occurrence: PE)
  Receive Date: 20040830
  Receipt Date: 20120925
  Transmission Date: 20130627
  Serious: Yes (Death, Other)
  Sender: FDA-Public Use
  Company Number: PHHO2004PE11938

PATIENT
  Age: 35 None
  Sex: Male

DRUGS (2)
  1. GLIVEC [Suspect]
     Indication: CHRONIC MYELOID LEUKAEMIA
     Dosage: 600 mg, QD
     Route: 048
     Dates: start: 20040519
  2. GLIVEC [Suspect]
     Dosage: 300 mg, QD
     Route: 048

REACTIONS (3)
  - Bronchopneumonia [Fatal]
  - Blast crisis in myelogenous leukaemia [Fatal]
  - Pancytopenia [Unknown]
